FAERS Safety Report 6451423-0 (Version None)
Quarter: 2009Q4

REPORT INFORMATION
  Report Type: 
  Country: None (occurrence: None)
  Receive Date: 20091123
  Receipt Date: 20091113
  Transmission Date: 20100525
  Serious: Yes (Hospitalization)
  Sender: FDA-Public Use
  Company Number: JP-BRISTOL-MYERS SQUIBB COMPANY-14826853

PATIENT
  Age: 62 Year
  Sex: Male
  Weight: 38 kg

DRUGS (5)
  1. ERBITUX [Suspect]
     Indication: COLON CANCER METASTATIC
     Dosage: INITIAL 27AUG09:400MG/M2(510MG)THEN WEEKLY 250MG/M2(320MG):03SEP-25SEP09;INTERRUPTED ON 02OCT09
     Route: 041
     Dates: start: 20090827, end: 20090827
  2. IRINOTECAN HCL [Suspect]
     Indication: COLON CANCER METASTATIC
     Route: 041
     Dates: start: 20090827, end: 20090925
  3. CHLOR-TRIMETON [Concomitant]
     Indication: PREMEDICATION
     Route: 042
     Dates: start: 20090827, end: 20090925
  4. DEXART [Concomitant]
     Indication: PREMEDICATION
     Route: 042
     Dates: start: 20090827, end: 20090925
  5. KYTRIL [Concomitant]
     Indication: PREMEDICATION
     Route: 042
     Dates: start: 20090827, end: 20090925

REACTIONS (2)
  - DECREASED APPETITE [None]
  - VOMITING [None]
